FAERS Safety Report 13822139 (Version 6)
Quarter: 2018Q3

REPORT INFORMATION
  Report Type: Report from Study
  Country: JP (occurrence: JP)
  Receive Date: 20170801
  Receipt Date: 20180713
  Transmission Date: 20181010
  Serious: Yes (Hospitalization, Other)
  Sender: FDA-Public Use
  Company Number: JP-ARIAD PHARMACEUTICALS, INC-2017JP008517

PATIENT
  Age: 79 Year
  Sex: Male
  Weight: 49.2 kg

DRUGS (7)
  1. PONATINIB [Suspect]
     Active Substance: PONATINIB
     Indication: CHRONIC MYELOID LEUKAEMIA
     Dosage: 45 MG, QD
     Route: 048
     Dates: start: 20130808, end: 20140414
  2. LOXOPROFEN [Concomitant]
     Active Substance: LOXOPROFEN
     Indication: PAIN IN EXTREMITY
     Dosage: 60 MG, UNK
     Route: 048
     Dates: start: 20180220
  3. GENTAMICIN SULFATE. [Concomitant]
     Active Substance: GENTAMICIN SULFATE
     Indication: PRODUCT USED FOR UNKNOWN INDICATION
     Dosage: UNK
     Route: 065
     Dates: start: 20170114
  4. PONATINIB [Suspect]
     Active Substance: PONATINIB
     Dosage: 15 MG, QOD
     Route: 048
     Dates: start: 20140415, end: 20170702
  5. KETOPROFEN. [Concomitant]
     Active Substance: KETOPROFEN
     Indication: PAIN IN EXTREMITY
     Dosage: 40 MG, UNK
     Route: 061
     Dates: start: 20171219
  6. BOSULIF [Concomitant]
     Active Substance: BOSUTINIB MONOHYDRATE
     Indication: CHRONIC MYELOID LEUKAEMIA
     Dosage: 200 MG, QD
     Route: 048
     Dates: start: 20170807
  7. AMLODIPINE                         /00972402/ [Concomitant]
     Active Substance: AMLODIPINE BESYLATE
     Indication: HYPERTENSION
     Dosage: 100 MG, QD
     Route: 048
     Dates: start: 20130819

REACTIONS (2)
  - Cerebral artery occlusion [Not Recovered/Not Resolved]
  - Peripheral artery occlusion [Recovered/Resolved]

NARRATIVE: CASE EVENT DATE: 20170602
